FAERS Safety Report 10918333 (Version 1)
Quarter: 2015Q1

REPORT INFORMATION
  Report Type: Spontaneous
  Country: US (occurrence: US)
  Receive Date: 20150316
  Receipt Date: 20150316
  Transmission Date: 20150721
  Serious: No
  Sender: FDA-Public Use
  Company Number: US-GALDERMA-US14000559

PATIENT
  Age: 78 Year
  Sex: Female

DRUGS (6)
  1. MAC FOUNDATION [Concomitant]
     Route: 061
  2. MAC POWDER [Concomitant]
     Route: 061
  3. SYNTHROID [Concomitant]
     Active Substance: LEVOTHYROXINE SODIUM
     Route: 048
  4. CETAPHIL DAILY FACIAL CLEANSER [Concomitant]
     Active Substance: COSMETICS
     Indication: THERAPEUTIC SKIN CARE TOPICAL
     Route: 061
  5. TRI-LUMA [Suspect]
     Active Substance: FLUOCINOLONE ACETONIDE\HYDROQUINONE\TRETINOIN
     Indication: SOLAR LENTIGO
     Route: 061
     Dates: start: 20140127, end: 20140206
  6. CETAPHIL MOISTURIZING CREAM [Concomitant]
     Active Substance: COSMETICS
     Indication: DRY SKIN PROPHYLAXIS
     Route: 061

REACTIONS (4)
  - Product use issue [Recovered/Resolved]
  - Rash [Recovered/Resolved]
  - Pruritus [Recovered/Resolved]
  - Drug ineffective for unapproved indication [Recovered/Resolved]

NARRATIVE: CASE EVENT DATE: 20140127
